FAERS Safety Report 24845944 (Version 2)
Quarter: 2025Q1

REPORT INFORMATION
  Report Type: Report from Study
  Country: US (occurrence: US)
  Receive Date: 20250115
  Receipt Date: 20250201
  Transmission Date: 20250409
  Serious: Yes (Death, Hospitalization)
  Sender: ABBVIE
  Company Number: US-ABBVIE-6087986

PATIENT
  Age: 85 Year
  Sex: Male
  Weight: 72.574 kg

DRUGS (1)
  1. HUMIRA [Suspect]
     Active Substance: ADALIMUMAB
     Indication: Psoriasis
     Dosage: FORM STRENGTH: 40MG, STARTED COUPLE OF YEARS AGO
     Route: 058
     Dates: end: 202411

REACTIONS (4)
  - Terminal state [Fatal]
  - Feeding disorder [Fatal]
  - Influenza [Fatal]
  - Aspiration [Unknown]

NARRATIVE: CASE EVENT DATE: 20250101
